FAERS Safety Report 16133650 (Version 1)
Quarter: 2019Q1

REPORT INFORMATION
  Report Type: Spontaneous
  Country: GB (occurrence: GB)
  Receive Date: 20190329
  Receipt Date: 20190329
  Transmission Date: 20190418
  Serious: Yes (Life-Threatening, Hospitalization, Disabling, Other)
  Sender: FDA-Public Use
  Company Number: GB-ACCORD-115714

PATIENT
  Age: 61 Year
  Sex: Female
  Weight: 38.1 kg

DRUGS (3)
  1. CODEINE PHOSPHATE/PARACETAMOL [Concomitant]
  2. METRONIDAZOLE. [Concomitant]
     Active Substance: METRONIDAZOLE
  3. RAMIPRIL. [Suspect]
     Active Substance: RAMIPRIL
     Indication: HYPERTENSION
     Route: 048
     Dates: start: 2014, end: 2016

REACTIONS (5)
  - Crohn^s disease [Not Recovered/Not Resolved]
  - Dyspnoea [Recovered/Resolved]
  - Mouth ulceration [Recovered/Resolved]
  - Fistula [Unknown]
  - Gastric ulcer haemorrhage [Not Recovered/Not Resolved]

NARRATIVE: CASE EVENT DATE: 2014
